FAERS Safety Report 20910169 (Version 1)
Quarter: 2022Q2

REPORT INFORMATION
  Report Type: Spontaneous
  Country: NL (occurrence: NL)
  Receive Date: 20220603
  Receipt Date: 20220603
  Transmission Date: 20220721
  Serious: Yes (Other)
  Sender: FDA-Public Use
  Company Number: NL-LUPIN PHARMACEUTICALS INC.-2022-08057

PATIENT
  Age: 23 Year
  Sex: Male

DRUGS (5)
  1. LORAZEPAM [Suspect]
     Active Substance: LORAZEPAM
     Indication: Niemann-Pick disease
     Dosage: 24 MG, QD (MAXIMUM 24 MILLIGRAM PER 24 HOUR)
     Route: 065
  2. LORAZEPAM [Suspect]
     Active Substance: LORAZEPAM
     Dosage: 7.5 MG, QD (MAXIMUM 7.5 MILLIGRAM PER 24 HOUR)
     Route: 048
  3. ARIPIPRAZOLE [Suspect]
     Active Substance: ARIPIPRAZOLE
     Indication: Niemann-Pick disease
     Dosage: 30 MG, MAINTENANCE THERAPY
     Route: 065
  4. ARIPIPRAZOLE [Suspect]
     Active Substance: ARIPIPRAZOLE
     Dosage: UNK, DOSE WAS TAPERED
     Route: 065
  5. MIGLUSTAT [Concomitant]
     Active Substance: MIGLUSTAT
     Indication: Niemann-Pick disease
     Dosage: UNK
     Route: 065

REACTIONS (4)
  - Paradoxical drug reaction [Unknown]
  - Drug ineffective for unapproved indication [Unknown]
  - Extrapyramidal disorder [Unknown]
  - Off label use [Unknown]
